FAERS Safety Report 14106391 (Version 3)
Quarter: 2017Q4

REPORT INFORMATION
  Report Type: Spontaneous
  Country: FR (occurrence: FR)
  Receive Date: 20171018
  Receipt Date: 20171031
  Transmission Date: 20180321
  Serious: Yes (Other)
  Sender: FDA-Public Use
  Company Number: FR-PFIZER INC-2017442771

PATIENT
  Age: 76 Year

DRUGS (2)
  1. GEMCITABINE HYDROCHLORIDE. [Suspect]
     Active Substance: GEMCITABINE HYDROCHLORIDE
     Indication: ADENOCARCINOMA PANCREAS
     Dosage: 1000 MG, UNK (750 MG/M2, I.E. 1,000 MG TOTAL DOSE, IN 250 ML OF NACL)
  2. SODIUM CHLORIDE. [Concomitant]
     Active Substance: SODIUM CHLORIDE
     Dosage: 250 ML, UNK

REACTIONS (2)
  - Administration site extravasation [Recovered/Resolved]
  - Chest pain [Recovered/Resolved]
